FAERS Safety Report 25780998 (Version 3)
Quarter: 2025Q4

REPORT INFORMATION
  Report Type: Report from Study
  Country: US (occurrence: US)
  Receive Date: 20250909
  Receipt Date: 20251013
  Transmission Date: 20260117
  Serious: Yes (Death, Other)
  Sender: ALEXION PHARMACEUTICALS
  Company Number: US-AstraZeneca-CH-00945857A

PATIENT
  Age: 80 Year
  Sex: Male
  Weight: 90.703 kg

DRUGS (5)
  1. DAPAGLIFLOZIN [Suspect]
     Active Substance: DAPAGLIFLOZIN
     Indication: Cardiac failure
     Dosage: UNK MILLIGRAM, QD
     Dates: start: 20240711
  2. DAPAGLIFLOZIN [Suspect]
     Active Substance: DAPAGLIFLOZIN
     Indication: Ejection fraction
  3. ELIQUIS [Concomitant]
     Active Substance: APIXABAN
     Dosage: 5 MILLIGRAM, QD
  4. FARXIGA [Concomitant]
     Active Substance: DAPAGLIFLOZIN PROPANEDIOL
     Dosage: 10 MILLIGRAM, QD
  5. FERROUS SULFATE [Concomitant]
     Active Substance: FERROUS SULFATE
     Dosage: 325 MILLIGRAM, QD

REACTIONS (27)
  - Death [Fatal]
  - Cardiac failure [Unknown]
  - Eye contusion [Unknown]
  - Epistaxis [Unknown]
  - Rhabdomyolysis [Unknown]
  - Injury [Unknown]
  - Head injury [Unknown]
  - Pneumonia [Unknown]
  - Malaise [Unknown]
  - Tearfulness [Unknown]
  - Agitation [Unknown]
  - Disorientation [Unknown]
  - Amnesia [Unknown]
  - Memory impairment [Unknown]
  - Hypoacusis [Unknown]
  - Fear of falling [Unknown]
  - Overweight [Unknown]
  - Wheelchair user [Unknown]
  - Ceruminous adenoma [Unknown]
  - Mumps [Unknown]
  - Oedema [Unknown]
  - Urinary retention [Unknown]
  - Pulmonary hypertension [Unknown]
  - Anaemia [Unknown]
  - Chronic left ventricular failure [Unknown]
  - Faecal occult blood [Unknown]
  - Iron deficiency anaemia [Unknown]

NARRATIVE: CASE EVENT DATE: 20250720
